FAERS Safety Report 9192100 (Version 1)
Quarter: 2013Q1

REPORT INFORMATION
  Report Type: Report from Study
  Country: CA (occurrence: CA)
  Receive Date: 20130327
  Receipt Date: 20130327
  Transmission Date: 20140127
  Serious: Yes (Other)
  Sender: FDA-Public Use
  Company Number: CA-BAYER-2013-034340

PATIENT
  Age: 54 Year
  Sex: Female

DRUGS (5)
  1. BETASERON [Suspect]
     Indication: MULTIPLE SCLEROSIS
     Dosage: 0.250 MCG
     Dates: start: 20090101
  2. DOMPERIDONE [Concomitant]
  3. VITAMIN B12 NOS [Concomitant]
  4. CIPRALEX [Concomitant]
  5. VITAMIN D [Concomitant]

REACTIONS (4)
  - Multiple sclerosis [Not Recovered/Not Resolved]
  - Hemiparesis [Not Recovered/Not Resolved]
  - Muscular weakness [Not Recovered/Not Resolved]
  - Drug dose omission [None]
